FAERS Safety Report 6178518-3 (Version None)
Quarter: 2009Q2

REPORT INFORMATION
  Report Type: 
  Country: None (occurrence: None)
  Receive Date: 20090504
  Receipt Date: 20090428
  Transmission Date: 20091009
  Serious: Yes (Other)
  Sender: FDA-Public Use
  Company Number: GB-ABBOTT-09P-167-0570579-00

PATIENT
  Sex: Female

DRUGS (10)
  1. REDUCTIL 15MG [Suspect]
     Indication: DRUG USE FOR UNKNOWN INDICATION
     Route: 048
     Dates: start: 20090401, end: 20090423
  2. REDUCTIL 15MG [Suspect]
     Route: 048
     Dates: start: 20090423
  3. LOSARTAN POSTASSIUM [Concomitant]
     Indication: DRUG USE FOR UNKNOWN INDICATION
  4. AMLODIPINE [Concomitant]
     Indication: DRUG USE FOR UNKNOWN INDICATION
  5. INDAPAMIDE [Concomitant]
     Indication: DRUG USE FOR UNKNOWN INDICATION
     Dosage: DAILY IN THE MORNING
  6. SIMVASTATIN [Concomitant]
     Indication: DRUG USE FOR UNKNOWN INDICATION
  7. GLUCOPHAGE [Concomitant]
     Indication: DRUG USE FOR UNKNOWN INDICATION
  8. MS SOLO [Concomitant]
     Indication: DRUG USE FOR UNKNOWN INDICATION
  9. LANTUS [Concomitant]
     Indication: DRUG USE FOR UNKNOWN INDICATION
  10. NOVORAPID [Concomitant]
     Indication: DRUG USE FOR UNKNOWN INDICATION

REACTIONS (2)
  - DIABETES MELLITUS INADEQUATE CONTROL [None]
  - HAEMORRHAGE SUBCUTANEOUS [None]
